FAERS Safety Report 8590776 (Version 2)
Quarter: 2012Q4

REPORT INFORMATION
  Report Type: 
  Country: US (occurrence: US)
  Receive Date: 20120601
  Receipt Date: 20121015
  Transmission Date: 20130627
  Serious: Yes (Other)
  Sender: FDA-Public Use
  Company Number: US-ROCHE-1072355

PATIENT
  Age: 48 Year
  Sex: Male
  Weight: 102.15 kg

DRUGS (5)
  1. XOLAIR [Suspect]
     Indication: ASTHMA
     Route: 058
     Dates: start: 20110624
  2. DEXILANT [Concomitant]
     Route: 048
  3. COMBIVENT [Concomitant]
  4. SPIRONOLACTONE [Concomitant]
  5. SINGULAIR [Concomitant]
     Route: 048

REACTIONS (1)
  - Acute myocardial infarction [Recovered/Resolved]
